FAERS Safety Report 8928858 (Version 2)
Quarter: 2012Q4

REPORT INFORMATION
  Report Type: 
  Country: US (occurrence: US)
  Receive Date: 20121128
  Receipt Date: 20121226
  Transmission Date: 20130627
  Serious: No
  Sender: FDA-Public Use
  Company Number: US-PFIZER INC-2012293965

PATIENT
  Age: 76 Year
  Sex: Female
  Weight: 66.67 kg

DRUGS (3)
  1. CELEBREX [Suspect]
     Indication: PAIN
     Dosage: UNK
     Dates: end: 201207
  2. CELEBREX [Suspect]
     Indication: KNEE ARTHRITIS
     Dosage: 200mg
     Dates: start: 201210, end: 201210
  3. XARELTO [Concomitant]
     Indication: ANTICOAGULANT THERAPY
     Dosage: 15 mg, 1x/day

REACTIONS (2)
  - Oedema peripheral [Not Recovered/Not Resolved]
  - Drug ineffective [Unknown]
